FAERS Safety Report 6560037-3 (Version None)
Quarter: 2010Q1

REPORT INFORMATION
  Report Type: 
  Country: None (occurrence: None)
  Receive Date: 20100129
  Receipt Date: 20090916
  Transmission Date: 20100710
  Serious: No
  Sender: FDA-Public Use
  Company Number: US-ABBOTT-09P-163-0598355-00

PATIENT
  Sex: Male

DRUGS (3)
  1. HUMIRA [Suspect]
     Indication: PSORIASIS
     Route: 058
     Dates: start: 20080601, end: 20090501
  2. HUMIRA [Suspect]
     Dates: start: 20080601, end: 20090501
  3. HUMIRA [Suspect]
     Route: 058
     Dates: start: 20090801

REACTIONS (1)
  - THROMBOCYTOPENIA [None]
